FAERS Safety Report 25081334 (Version 2)
Quarter: 2025Q2

REPORT INFORMATION
  Report Type: Spontaneous
  Country: US (occurrence: US)
  Receive Date: 20250316
  Receipt Date: 20250513
  Transmission Date: 20250716
  Serious: Yes (Other)
  Sender: SANOFI AVENTIS
  Company Number: US-SA-2025SA076030

PATIENT
  Age: 46 Year
  Sex: Female

DRUGS (6)
  1. DUPIXENT [Suspect]
     Active Substance: DUPILUMAB
     Indication: Eosinophilic oesophagitis
     Dosage: 300 MG, QW
     Route: 058
  2. LIOTHYRONINE SODIUM [Concomitant]
     Active Substance: LIOTHYRONINE SODIUM
  3. LINZESS [Concomitant]
     Active Substance: LINACLOTIDE
  4. TRAZODONE [Concomitant]
     Active Substance: TRAZODONE HYDROCHLORIDE
  5. TYROSINE [Concomitant]
     Active Substance: TYROSINE
  6. GUANFACINE [Concomitant]
     Active Substance: GUANFACINE

REACTIONS (11)
  - Suicidal ideation [Recovered/Resolved]
  - Urinary retention [Recovered/Resolved]
  - Gastrointestinal pain [Recovered/Resolved]
  - Anxiety [Recovered/Resolved]
  - Thyroid disorder [Recovered/Resolved]
  - Eosinophilic oesophagitis [Recovered/Resolved]
  - Secretion discharge [Recovered/Resolved]
  - Inflammation [Recovered/Resolved]
  - Dysbiosis [Recovered/Resolved]
  - Constipation [Recovered/Resolved]
  - Cough [Recovered/Resolved]
